FAERS Safety Report 6756510-5 (Version None)
Quarter: 2010Q2

REPORT INFORMATION
  Report Type: 
  Country: None (occurrence: None)
  Receive Date: 20100604
  Receipt Date: 20100526
  Transmission Date: 20101027
  Serious: Yes (Hospitalization)
  Sender: FDA-Public Use
  Company Number: B0657248A

PATIENT
  Age: 50 Year
  Sex: Male

DRUGS (6)
  1. EPIVIR [Suspect]
     Indication: HIV INFECTION
     Route: 048
     Dates: start: 20050401, end: 20091116
  2. BACTRIM [Suspect]
     Indication: PROPHYLAXIS
     Dosage: 2TAB THREE TIMES PER DAY
     Route: 048
     Dates: start: 20091103, end: 20091104
  3. BACTRIM [Suspect]
     Route: 042
     Dates: start: 20091105, end: 20091106
  4. VIDEX [Suspect]
     Indication: HIV INFECTION
     Route: 048
     Dates: start: 20050401, end: 20091116
  5. KALETRA [Concomitant]
     Indication: HIV INFECTION
     Route: 048
     Dates: start: 20050401, end: 20091116
  6. VALPROIC ACID [Concomitant]
     Indication: EPILEPSY

REACTIONS (7)
  - DIARRHOEA HAEMORRHAGIC [None]
  - LACTIC ACIDOSIS [None]
  - METABOLIC ACIDOSIS [None]
  - MITOCHONDRIAL TOXICITY [None]
  - PNEUMOCYSTIS JIROVECI PNEUMONIA [None]
  - RESPIRATORY DISORDER [None]
  - TREATMENT NONCOMPLIANCE [None]
